FAERS Safety Report 11816098 (Version 1)
Quarter: 2015Q4

REPORT INFORMATION
  Report Type: Spontaneous
  Country: US (occurrence: US)
  Receive Date: 20151209
  Receipt Date: 20151209
  Transmission Date: 20160305
  Serious: Yes (Hospitalization, Congenital Anomaly, Other)
  Sender: FDA-Public Use
  Company Number: PHHY2015US157245

PATIENT
  Sex: Male

DRUGS (2)
  1. PENICILLIN G SODIUM. [Suspect]
     Active Substance: PENICILLIN G SODIUM
     Indication: FOETAL EXPOSURE DURING PREGNANCY
     Dosage: MATERNAL DOSE: THREE DOSES
     Route: 064
  2. DIGOXIN. [Suspect]
     Active Substance: DIGOXIN
     Indication: FOETAL EXPOSURE DURING PREGNANCY
     Dosage: MATERNAL DOSE: ONLY ONE DOSE
     Route: 064

REACTIONS (10)
  - Respiratory distress [Unknown]
  - Foetal exposure during pregnancy [Unknown]
  - Dilatation atrial [Unknown]
  - Patent ductus arteriosus [Unknown]
  - Tricuspid valve incompetence [Unknown]
  - Acidosis [Unknown]
  - Premature baby [Unknown]
  - Atrial flutter [Unknown]
  - Cardiac failure congestive [Unknown]
  - Atrial septal defect [Unknown]
